FAERS Safety Report 5875485-4 (Version None)
Quarter: 2008Q3

REPORT INFORMATION
  Report Type: 
  Country: None (occurrence: None)
  Receive Date: 20080909
  Receipt Date: 20080828
  Transmission Date: 20090109
  Serious: Yes (Hospitalization)
  Sender: FDA-Public Use
  Company Number: US-GILEAD-2008-0017932

PATIENT
  Sex: Male

DRUGS (13)
  1. AMBRISENTAN [Suspect]
     Indication: PULMONARY ARTERIAL HYPERTENSION
     Dates: start: 20070619
  2. AMBRISENTAN [Suspect]
     Dates: start: 20070309, end: 20070618
  3. SILDENAFIL CITRATE [Concomitant]
     Dates: start: 20071019
  4. WARFARIN SODIUM [Concomitant]
     Dates: start: 19920101
  5. TORSEMIDE [Concomitant]
     Dates: start: 20070613
  6. DIGOXIN [Concomitant]
     Dates: start: 20071018, end: 20080306
  7. POTASSIUM CHLORIDE [Concomitant]
     Dates: start: 19920101, end: 20080106
  8. DOCUSATE SODIUM [Concomitant]
     Dates: start: 20071102
  9. ALLOPURINOL [Concomitant]
     Dates: start: 20071206
  10. EPOETIN [Concomitant]
     Dates: start: 20080106
  11. OXYGEN [Concomitant]
  12. PANTOPRAZOLE [Concomitant]
     Dates: start: 20080106
  13. RANITIDINE [Concomitant]
     Dates: start: 20071120, end: 20080106

REACTIONS (3)
  - RENAL FAILURE [None]
  - RESPIRATORY FAILURE [None]
  - RIGHT VENTRICULAR FAILURE [None]
